FAERS Safety Report 7154886 (Version 3)
Quarter: 2013Q4

REPORT INFORMATION
  Report Type: Spontaneous
  Country: US (occurrence: None)
  Receive Date: 20091008
  Receipt Date: 20131224
  Transmission Date: 20140711
  Serious: Yes (Other)
  Sender: FDA-Public Use
  Company Number: 2009S1007509

PATIENT
  Age: 59 Year
  Sex: Male
  Weight: 102.97 kg

DRUGS (9)
  1. FLEET PHOSPHO-SODA ORAL SALINE LAXATIVE, GINGER-LEMON FLAVOR [Suspect]
     Indication: COLONOSCOPY
     Dosage: 2 IN TOTAL
     Route: 048
     Dates: start: 19980824, end: 19980824
  2. FLEET PHOSPHO-SODA ORAL SALINE LAXATIVE, GINGER-LEMON FLAVOR [Suspect]
     Indication: ENDOSCOPY UPPER GASTROINTESTINAL TRACT
     Dosage: 2 IN TOTAL
     Route: 048
     Dates: start: 19980824, end: 19980824
  3. PRINIVIL [Concomitant]
  4. HYDROCHLOROTHIAZIDE [Concomitant]
  5. ASPIRIN [Concomitant]
  6. CARDURA (DOXAZOSIN MESILATE) [Concomitant]
  7. DILACOR (VERAPAMIL HYDROCHLORIDE) [Concomitant]
  8. PRAVACHOL (PRAVASTATIN SODIUM) [Concomitant]
  9. PREVACID (LANSOPRAZOLE) [Concomitant]

REACTIONS (6)
  - Renal failure acute [None]
  - Renal failure chronic [None]
  - Anaemia [None]
  - Fatigue [None]
  - Lethargy [None]
  - Malaise [None]
